FAERS Safety Report 24074804 (Version 1)
Quarter: 2024Q3

REPORT INFORMATION
  Report Type: Spontaneous
  Country: US (occurrence: US)
  Receive Date: 20240710
  Receipt Date: 20240710
  Transmission Date: 20241017
  Serious: Yes (Hospitalization, Other)
  Sender: Vantive US Healthcare
  Company Number: US-VANTIVE-2024VAN018120

PATIENT
  Age: 60 Year
  Sex: Male
  Weight: 110 kg

DRUGS (2)
  1. EXTRANEAL [Suspect]
     Active Substance: CALCIUM CHLORIDE\ICODEXTRIN\MAGNESIUM CHLORIDE\SODIUM CHLORIDE\SODIUM LACTATE
     Dosage: 7 DAYS A WEEK, EXCHANGE VOLUME/LAST FILL: 1500 ML, DAYTIME EXCHANGE:1, DAYTIME
     Route: 033
  2. BACTRIM [Suspect]
     Active Substance: SULFAMETHOXAZOLE\TRIMETHOPRIM
     Indication: Peritonitis bacterial
     Dosage: 80MG/400MG TWICE DAILY FOR 21 DAYS
     Route: 048
     Dates: start: 20240417

REACTIONS (9)
  - Peritonitis bacterial [Recovered/Resolved]
  - Peritoneal cloudy effluent [Recovered/Resolved]
  - Abdominal pain [Recovered/Resolved]
  - Peritonitis bacterial [Recovered/Resolved]
  - Peritoneal cloudy effluent [Recovered/Resolved]
  - Abdominal pain [Recovered/Resolved]
  - Drug ineffective [Unknown]
  - Peritoneal dialysis complication [Unknown]
  - Device issue [Unknown]

NARRATIVE: CASE EVENT DATE: 20240412
